FAERS Safety Report 6747532-9 (Version None)
Quarter: 2010Q2

REPORT INFORMATION
  Report Type: 
  Country: None (occurrence: None)
  Receive Date: 20100528
  Receipt Date: 20100521
  Transmission Date: 20101027
  Serious: Yes (Other)
  Sender: FDA-Public Use
  Company Number: JP-JNJFOC-20100508614

PATIENT
  Age: 72 Year
  Sex: Male

DRUGS (5)
  1. CRAVIT [Suspect]
     Indication: PNEUMONIA
     Route: 048
  2. SEREVENT [Concomitant]
     Route: 055
  3. ADOAIR [Concomitant]
     Route: 055
  4. SPIRIVA [Concomitant]
     Route: 055
  5. THEO-DUR [Concomitant]
     Route: 048

REACTIONS (2)
  - ACUTE RESPIRATORY FAILURE [None]
  - PNEUMONIA [None]
